FAERS Safety Report 12503794 (Version 1)
Quarter: 2016Q2

REPORT INFORMATION
  Report Type: Spontaneous
  Country: US (occurrence: US)
  Receive Date: 20160628
  Receipt Date: 20160628
  Transmission Date: 20160815
  Serious: No
  Sender: FDA-Public Use
  Company Number: US-ACTAVIS-2016-06730

PATIENT
  Age: 94 Year
  Sex: Male

DRUGS (1)
  1. MIRTAZAPINE (ACTAVIS LABORATORIES FL) [Suspect]
     Active Substance: MIRTAZAPINE
     Indication: SLEEP DISORDER
     Dosage: 7.5 MG, QHS
     Route: 048
     Dates: start: 20160311

REACTIONS (1)
  - Drug effect decreased [Not Recovered/Not Resolved]
